FAERS Safety Report 9509614 (Version 1)
Quarter: 2013Q3

REPORT INFORMATION
  Report Type: Spontaneous
  Country: US (occurrence: US)
  Receive Date: 20130909
  Receipt Date: 20130909
  Transmission Date: 20140515
  Serious: No
  Sender: FDA-Public Use
  Company Number: US-BRISTOL-MYERS SQUIBB COMPANY-18910646

PATIENT
  Age: 64 Year
  Sex: Female
  Weight: 62.13 kg

DRUGS (9)
  1. ABILIFY [Suspect]
     Indication: DEPRESSION
  2. DILTIAZEM CD [Concomitant]
  3. CARVEDILOL [Concomitant]
  4. CLONAZEPAM [Concomitant]
  5. ZOLOFT [Concomitant]
     Dosage: 1DF:ZOLOFT 150MG 1.5TABLETS
  6. PANTOPRAZOLE [Concomitant]
     Indication: GASTROOESOPHAGEAL REFLUX DISEASE
  7. ACETYLSALICYLIC ACID [Concomitant]
  8. MONTELUKAST [Concomitant]
     Indication: HYPERSENSITIVITY
  9. SINGULAIR [Concomitant]

REACTIONS (1)
  - Faeces discoloured [Unknown]
